FAERS Safety Report 10939628 (Version 2)
Quarter: 2015Q2

REPORT INFORMATION
  Report Type: Spontaneous
  Country: US (occurrence: US)
  Receive Date: 20150322
  Receipt Date: 20150525
  Transmission Date: 20150821
  Serious: Yes (Hospitalization, Other)
  Sender: FDA-Public Use
  Company Number: US-JNJFOC-20140606806

PATIENT
  Age: 8 Year
  Sex: Female

DRUGS (4)
  1. RISPERIDONE. [Suspect]
     Active Substance: RISPERIDONE
     Indication: HALLUCINATION, VISUAL
     Route: 065
  2. RISPERIDONE. [Suspect]
     Active Substance: RISPERIDONE
     Indication: HALLUCINATION, VISUAL
     Dosage: 0.5 MG TWICE DAILY, 0.75 MG AT BEDTIME
     Route: 065
  3. RISPERIDONE. [Suspect]
     Active Substance: RISPERIDONE
     Indication: HALLUCINATION, AUDITORY
     Route: 065
  4. RISPERIDONE. [Suspect]
     Active Substance: RISPERIDONE
     Indication: HALLUCINATION, AUDITORY
     Dosage: 0.5 MG TWICE DAILY, 0.75 MG AT BEDTIME
     Route: 065

REACTIONS (11)
  - Irritability [Unknown]
  - Product use issue [Unknown]
  - Poor quality sleep [Unknown]
  - Psychotic disorder [Unknown]
  - Precocious puberty [Unknown]
  - Treatment noncompliance [Unknown]
  - Disturbance in attention [Unknown]
  - Asthenia [Unknown]
  - Blood prolactin increased [Unknown]
  - Increased appetite [Unknown]
  - Energy increased [Unknown]
